FAERS Safety Report 25595387 (Version 2)
Quarter: 2025Q3

REPORT INFORMATION
  Report Type: Report from Study
  Country: US (occurrence: US)
  Receive Date: 20250723
  Receipt Date: 20250729
  Transmission Date: 20251020
  Serious: No
  Sender: ABBVIE
  Company Number: US-ABBVIE-6382686

PATIENT
  Age: 56 Year
  Sex: Female

DRUGS (2)
  1. HUMIRA [Suspect]
     Active Substance: ADALIMUMAB
     Indication: Dermatitis
     Route: 058
     Dates: end: 202503
  2. HUMIRA [Suspect]
     Active Substance: ADALIMUMAB
     Route: 058

REACTIONS (4)
  - Rash macular [Unknown]
  - Skin discolouration [Unknown]
  - Rash [Unknown]
  - Injection site discharge [Not Recovered/Not Resolved]

NARRATIVE: CASE EVENT DATE: 20250501
